FAERS Safety Report 5990450-4 (Version None)
Quarter: 2008Q4

REPORT INFORMATION
  Report Type: 
  Country: None (occurrence: None)
  Receive Date: 20081211
  Receipt Date: 20081201
  Transmission Date: 20090506
  Serious: Yes (Hospitalization)
  Sender: FDA-Public Use
  Company Number: NO-PFIZER INC-2008101236

PATIENT

DRUGS (12)
  1. DETRUSITOL SR [Suspect]
     Route: 048
     Dates: start: 20080918, end: 20081001
  2. DIURAL [Suspect]
     Dates: end: 20081001
  3. VOLTAREN [Concomitant]
     Dosage: 50 MG MORNING: MAXIMUM TWO TIMES PER DAY
  4. ACETAMINOPHEN [Concomitant]
  5. BETULAC [Concomitant]
     Dosage: 15 ML MORNING
  6. PARALGIN FORTE [Concomitant]
     Dosage: UP TO THREE TIMES PER DAY
  7. GLUCOPHAGE [Concomitant]
     Route: 048
  8. NEXIUM [Concomitant]
     Dosage: 40 MG MORNING
     Route: 048
  9. LOPERAMIDE HYDROCHLORIDE [Concomitant]
  10. ALBYL-E [Concomitant]
     Dosage: 75 MG MORNING
     Route: 048
  11. SELO-ZOK [Concomitant]
     Dosage: 25 MG MORNING
  12. IMOVANE [Concomitant]
     Dosage: 7.5 MG EVENING

REACTIONS (3)
  - DIZZINESS [None]
  - FALL [None]
  - ORTHOSTATIC HYPOTENSION [None]
